FAERS Safety Report 8722560 (Version 2)
Quarter: 2013Q1

REPORT INFORMATION
  Report Type: Spontaneous
  Country: AU (occurrence: AU)
  Receive Date: 20120814
  Receipt Date: 20130307
  Transmission Date: 20140127
  Serious: Yes (Other)
  Sender: FDA-Public Use
  Company Number: AU-UCBSA-063345

PATIENT
  Age: 49 Year
  Sex: Female

DRUGS (10)
  1. VIMPAT [Suspect]
     Indication: CONVULSION
     Route: 048
     Dates: start: 20111130, end: 20120112
  2. VIMPAT [Suspect]
     Indication: EPILEPSY
     Route: 048
     Dates: start: 20111130, end: 20120112
  3. VIMPAT [Suspect]
     Indication: CONVULSION
     Route: 048
     Dates: start: 20111123, end: 201111
  4. VIMPAT [Suspect]
     Indication: EPILEPSY
     Route: 048
     Dates: start: 20111123, end: 201111
  5. VIMPAT [Suspect]
     Indication: CONVULSION
     Route: 048
     Dates: start: 20111116, end: 201111
  6. VIMPAT [Suspect]
     Indication: EPILEPSY
     Route: 048
     Dates: start: 20111116, end: 201111
  7. TOPAMAX [Concomitant]
     Indication: CONVULSION
     Route: 048
  8. TOPAMAX [Concomitant]
     Indication: CONVULSION
     Dosage: DOWN-TITRATED
  9. TEGRETOL CR [Concomitant]
     Indication: CONVULSION
     Route: 048
  10. LIPITOR [Concomitant]
     Indication: HYPERCHOLESTEROLAEMIA

REACTIONS (1)
  - Convulsion [Recovered/Resolved]
